FAERS Safety Report 19240497 (Version 3)
Quarter: 2021Q2

REPORT INFORMATION
  Report Type: Other
  Country: US (occurrence: US)
  Receive Date: 20210511
  Receipt Date: 20210609
  Transmission Date: 20210717
  Serious: Yes (Hospitalization, Other)
  Sender: FDA-Public Use
  Company Number: US-ROCHE-2825086

PATIENT
  Sex: Female
  Weight: 81.27 kg

DRUGS (36)
  1. ACTEMRA [Suspect]
     Active Substance: TOCILIZUMAB
  2. CALCIUM CARBONATE. [Concomitant]
     Active Substance: CALCIUM CARBONATE
     Route: 048
  3. DELTASONE [Concomitant]
     Active Substance: PREDNISONE
     Dosage: 5 MG TABLET TOTAL 9 MG
     Route: 048
  4. TURMERIC [Concomitant]
     Active Substance: HERBALS\TURMERIC
     Route: 048
  5. ACTEMRA [Suspect]
     Active Substance: TOCILIZUMAB
  6. ACTEMRA [Suspect]
     Active Substance: TOCILIZUMAB
  7. BIOTIN [Concomitant]
     Active Substance: BIOTIN
     Route: 048
  8. VITAMIN D3 [Concomitant]
     Active Substance: CHOLECALCIFEROL
     Dosage: 2000 UNIT
     Route: 048
  9. ACTEMRA [Suspect]
     Active Substance: TOCILIZUMAB
     Indication: GIANT CELL ARTERITIS
     Dosage: INJECT IN SKIN, FOR 3 MONTHS?NEXT DATE OF TREATMENT: 11/JAN/2018
     Route: 058
  10. ACTEMRA [Suspect]
     Active Substance: TOCILIZUMAB
  11. ACTEMRA [Suspect]
     Active Substance: TOCILIZUMAB
  12. ACTEMRA [Suspect]
     Active Substance: TOCILIZUMAB
     Indication: SPINAL PAIN
  13. PRILOSEC [Concomitant]
     Active Substance: OMEPRAZOLE MAGNESIUM
     Route: 048
  14. ACTEMRA [Suspect]
     Active Substance: TOCILIZUMAB
  15. ACTEMRA [Suspect]
     Active Substance: TOCILIZUMAB
  16. ACTEMRA [Suspect]
     Active Substance: TOCILIZUMAB
  17. ACTEMRA [Suspect]
     Active Substance: TOCILIZUMAB
  18. ECOTRIN [Concomitant]
     Active Substance: ASPIRIN
     Route: 048
  19. PREDNISONE. [Concomitant]
     Active Substance: PREDNISONE
  20. PREDNISONE. [Concomitant]
     Active Substance: PREDNISONE
  21. ACTEMRA [Suspect]
     Active Substance: TOCILIZUMAB
  22. VALIUM [Suspect]
     Active Substance: DIAZEPAM
     Indication: PRODUCT USED FOR UNKNOWN INDICATION
     Route: 065
  23. FISH OIL OMEGA 3 [Concomitant]
     Active Substance: FISH OIL
     Dosage: 360 TO  1200 MG CAPSULE
     Route: 048
  24. ACTEMRA [Suspect]
     Active Substance: TOCILIZUMAB
     Indication: POLYMYALGIA RHEUMATICA
  25. ACTEMRA [Suspect]
     Active Substance: TOCILIZUMAB
     Indication: CHRONIC MYELOMONOCYTIC LEUKAEMIA
  26. ACTEMRA [Suspect]
     Active Substance: TOCILIZUMAB
     Indication: ADVERSE DRUG REACTION
  27. ACTEMRA [Suspect]
     Active Substance: TOCILIZUMAB
     Indication: PAIN
  28. ACTEMRA [Suspect]
     Active Substance: TOCILIZUMAB
  29. ACTEMRA [Suspect]
     Active Substance: TOCILIZUMAB
     Indication: BACK PAIN
  30. COLACE 2 IN 1 [Concomitant]
     Active Substance: DOCUSATE SODIUM\SENNOSIDES
     Route: 048
  31. VALIUM [Concomitant]
     Active Substance: DIAZEPAM
  32. ACTEMRA [Suspect]
     Active Substance: TOCILIZUMAB
  33. ACTEMRA [Suspect]
     Active Substance: TOCILIZUMAB
  34. ACTEMRA [Suspect]
     Active Substance: TOCILIZUMAB
  35. LIORESAL [Concomitant]
     Active Substance: BACLOFEN
     Dosage: AT BEDTIME
     Route: 048
  36. ACIDOPHILUS PROBIOTIC BLEND [Concomitant]
     Dosage: 30 CAPSULE
     Route: 048

REACTIONS (3)
  - Peripheral venous disease [Unknown]
  - Blindness unilateral [Unknown]
  - Stasis dermatitis [Unknown]
